FAERS Safety Report 4618506-9 (Version None)
Quarter: 2005Q1

REPORT INFORMATION
  Report Type: 
  Country: None (occurrence: None)
  Receive Date: 20050323
  Receipt Date: 20050315
  Transmission Date: 20050727
  Serious: Yes (Hospitalization)
  Sender: FDA-Public Use
  Company Number: 2005GB00539

PATIENT
  Sex: Female

DRUGS (2)
  1. LISINOPRIL [Suspect]
     Indication: BLOOD PRESSURE INCREASED
     Dates: start: 20050204
  2. ARAVA [Concomitant]

REACTIONS (3)
  - DRUG HYPERSENSITIVITY [None]
  - RASH [None]
  - SWELLING FACE [None]
